FAERS Safety Report 18719317 (Version 4)
Quarter: 2021Q1

REPORT INFORMATION
  Report Type: Spontaneous
  Country: GB (occurrence: GB)
  Receive Date: 20210108
  Receipt Date: 20210203
  Transmission Date: 20210419
  Serious: Yes (Death, Other)
  Sender: FDA-Public Use
  Company Number: GB-009507513-2101GBR003749

PATIENT
  Age: 49 Year
  Sex: Male

DRUGS (6)
  1. CLONAZEPAM. [Suspect]
     Active Substance: CLONAZEPAM
     Dosage: UNK
  2. MIRTAZAPINE. [Suspect]
     Active Substance: MIRTAZAPINE
     Dosage: UNK
  3. MORPHINE [Suspect]
     Active Substance: MORPHINE
     Dosage: UNK
  4. TAPENTADOL [Suspect]
     Active Substance: TAPENTADOL
     Dosage: UNK
  5. PREGABALIN. [Suspect]
     Active Substance: PREGABALIN
     Dosage: UNK
  6. ETIZOLAM [Suspect]
     Active Substance: ETIZOLAM
     Dosage: UNK

REACTIONS (2)
  - Toxicity to various agents [Fatal]
  - Drug abuse [Unknown]
